FAERS Safety Report 14367618 (Version 1)
Quarter: 2018Q1

REPORT INFORMATION
  Report Type: Spontaneous
  Country: US (occurrence: US)
  Receive Date: 20180105
  Receipt Date: 20180105
  Transmission Date: 20180509
  Serious: No
  Sender: FDA-Public Use
  Company Number: None

PATIENT
  Age: 33 Year
  Sex: Female

DRUGS (2)
  1. C-PROGESTERONE IN ETHYL OLEATE 50MG/ML COMPOUNDED BY CVS SPECIALTY #48031-MTP [Suspect]
     Active Substance: PROGESTERONE
     Indication: PREGNANCY
     Dosage: 50-100MG (=1-2 ML) DAILY INTRAMUSCULARLY
     Route: 030
     Dates: start: 20171229
  2. C-PROGESTERONE IN ETHYL OLEATE 50MG/ML COMPOUNDED BY CVS SPECIALTY #48031-MTP [Suspect]
     Active Substance: PROGESTERONE
     Indication: INFERTILITY
     Dosage: 50-100MG (=1-2 ML) DAILY INTRAMUSCULARLY
     Route: 030
     Dates: start: 20171229

REACTIONS (6)
  - Application site pruritus [None]
  - Dermatitis contact [None]
  - Therapy cessation [None]
  - Haemorrhage [None]
  - Application site urticaria [None]
  - Injection site pruritus [None]

NARRATIVE: CASE EVENT DATE: 20180102
